FAERS Safety Report 16687418 (Version 4)
Quarter: 2020Q1

REPORT INFORMATION
  Report Type: Spontaneous
  Country: BY (occurrence: BY)
  Receive Date: 20190809
  Receipt Date: 20200121
  Transmission Date: 20200409
  Serious: Yes (Death, Hospitalization, Other)
  Sender: FDA-Public Use
  Company Number: BY-JNJFOC-20190739840

PATIENT
  Age: 65 Year
  Sex: Male
  Weight: 55 kg

DRUGS (20)
  1. ASCAZIN                            /00156501/ [Concomitant]
     Indication: PRODUCT USED FOR UNKNOWN INDICATION
     Route: 042
  2. INSULIN [Concomitant]
     Active Substance: INSULIN NOS
     Indication: PRODUCT USED FOR UNKNOWN INDICATION
     Dosage: WITH GLUCOSE 5 PERCENTAGE SOLUTION.
     Route: 042
  3. CLOFAZIMINE [Suspect]
     Active Substance: CLOFAZIMINE
     Indication: TUBERCULOSIS
     Route: 048
     Dates: start: 20171010
  4. ETHIONAMIDE [Suspect]
     Active Substance: ETHIONAMIDE
     Indication: TUBERCULOSIS
     Route: 048
     Dates: start: 20180331, end: 20180905
  5. FAMOTIDINE. [Concomitant]
     Active Substance: FAMOTIDINE
     Indication: PRODUCT USED FOR UNKNOWN INDICATION
     Route: 048
     Dates: start: 20180711, end: 20181011
  6. NEUROVIT                           /00056102/ [Concomitant]
     Route: 030
     Dates: start: 20180718, end: 20180807
  7. SIRTURO [Suspect]
     Active Substance: BEDAQUILINE FUMARATE
     Indication: TUBERCULOSIS
     Route: 048
     Dates: start: 20171010
  8. DIAVITAL [Concomitant]
     Indication: PRODUCT USED FOR UNKNOWN INDICATION
     Route: 042
     Dates: start: 20180717, end: 20180728
  9. EMOXIPINE [Concomitant]
     Indication: PRODUCT USED FOR UNKNOWN INDICATION
     Route: 042
     Dates: start: 20180718, end: 20180728
  10. DELAMANID [Suspect]
     Active Substance: DELAMANID
     Indication: TUBERCULOSIS
     Route: 048
     Dates: start: 20180905
  11. PYRIDOXINE [Concomitant]
     Active Substance: PYRIDOXINE
     Indication: PRODUCT USED FOR UNKNOWN INDICATION
     Route: 048
     Dates: start: 20171024, end: 20181011
  12. AMITRIPTYLINE [Concomitant]
     Active Substance: AMITRIPTYLINE
     Indication: PRODUCT USED FOR UNKNOWN INDICATION
     Route: 048
     Dates: start: 20180903, end: 20180914
  13. IMODIUM [Concomitant]
     Active Substance: LOPERAMIDE HYDROCHLORIDE
     Dates: start: 20180917, end: 20180921
  14. LINEZOLID. [Suspect]
     Active Substance: LINEZOLID
     Indication: TUBERCULOSIS
     Dosage: 600/300
     Route: 048
     Dates: start: 20171010
  15. FLUOKSETIN VITABALANS [Concomitant]
     Indication: PRODUCT USED FOR UNKNOWN INDICATION
     Route: 048
     Dates: start: 20180912, end: 20181011
  16. CAPREOMYCIN [Suspect]
     Active Substance: CAPREOMYCIN
     Indication: TUBERCULOSIS
     Route: 030
     Dates: start: 20171010, end: 20180327
  17. METOCLOPRAMIDE. [Concomitant]
     Active Substance: METOCLOPRAMIDE
     Indication: PRODUCT USED FOR UNKNOWN INDICATION
     Route: 048
     Dates: start: 20180711, end: 20180718
  18. ZOPICLON [Concomitant]
     Active Substance: ZOPICLONE
     Indication: PRODUCT USED FOR UNKNOWN INDICATION
     Route: 048
     Dates: start: 20180914, end: 20181011
  19. NEIROMIDIN [Concomitant]
     Active Substance: IPIDACRINE
     Route: 048
     Dates: start: 20180718, end: 20180808
  20. GLUCOSE                            /00203503/ [Concomitant]
     Active Substance: DEXTROSE MONOHYDRATE
     Dosage: GLUCOSE 5 PERCENTAGE
     Route: 042
     Dates: start: 20180913, end: 20181011

REACTIONS (11)
  - Pneumonia [Fatal]
  - Haemothorax [Fatal]
  - Osteochondrosis [Unknown]
  - Vestibular ataxia [Unknown]
  - Cachexia [Fatal]
  - Peripheral sensory neuropathy [Unknown]
  - Lumbar vertebral fracture [Unknown]
  - Sacroiliitis [Unknown]
  - Coronary artery insufficiency [Fatal]
  - Intervertebral disc protrusion [Unknown]
  - Spinal osteoarthritis [Unknown]

NARRATIVE: CASE EVENT DATE: 2018
